FAERS Safety Report 5612229-5 (Version None)
Quarter: 2008Q1

REPORT INFORMATION
  Report Type: 
  Country: None (occurrence: None)
  Receive Date: 20080204
  Receipt Date: 20080124
  Transmission Date: 20080703
  Serious: Yes (Other)
  Sender: FDA-Public Use
  Company Number: US-ROCHE-523755

PATIENT
  Age: 65 Year
  Sex: Female

DRUGS (4)
  1. BONIVA [Suspect]
     Indication: OSTEOPOROSIS
     Route: 065
     Dates: start: 20050101
  2. ZIAC [Concomitant]
  3. ACIPHEX [Concomitant]
  4. TRAZODONE HCL [Concomitant]
     Indication: SLEEP DISORDER THERAPY

REACTIONS (8)
  - ARTHRALGIA [None]
  - BREAST CANCER RECURRENT [None]
  - CHILLS [None]
  - COSTOCHONDRITIS [None]
  - FEELING HOT [None]
  - HYPERHIDROSIS [None]
  - MUSCULOSKELETAL PAIN [None]
  - PAIN IN EXTREMITY [None]
